FAERS Safety Report 15686989 (Version 1)
Quarter: 2018Q4

REPORT INFORMATION
  Report Type: Spontaneous
  Country: JP (occurrence: JP)
  Receive Date: 20181204
  Receipt Date: 20181204
  Transmission Date: 20190205
  Serious: Yes (Life-Threatening, Hospitalization, Other)
  Sender: FDA-Public Use
  Company Number: PHHY2009JP40255

PATIENT
  Age: 35 Year
  Sex: Male
  Weight: 90 kg

DRUGS (7)
  1. SANOREX [Suspect]
     Active Substance: MAZINDOL
     Indication: EUPHORIC MOOD
     Dosage: 5 MG, QD
     Route: 048
     Dates: start: 200808, end: 20081019
  2. SANOREX [Suspect]
     Active Substance: MAZINDOL
     Indication: WEIGHT DECREASED
     Dosage: 5 MG, QD
     Route: 048
  3. OLANZAPINE. [Concomitant]
     Active Substance: OLANZAPINE
     Indication: PRODUCT USED FOR UNKNOWN INDICATION
     Route: 065
  4. RITALIN [Suspect]
     Active Substance: METHYLPHENIDATE HYDROCHLORIDE
     Indication: DEPRESSED MOOD
     Dosage: UNK
     Route: 048
  5. VEGETAMIN A [Concomitant]
     Active Substance: CHLORPROMAZINE HYDROCHLORIDE\PHENOBARBITAL\PROMETHAZINE
     Indication: PRODUCT USED FOR UNKNOWN INDICATION
     Dosage: UNK
     Route: 048
  6. DEPROMEL [Concomitant]
     Active Substance: FLUVOXAMINE
     Indication: PRODUCT USED FOR UNKNOWN INDICATION
     Route: 048
  7. SILECE [Concomitant]
     Active Substance: FLUNITRAZEPAM
     Indication: PRODUCT USED FOR UNKNOWN INDICATION
     Route: 065

REACTIONS (25)
  - Drug abuse [Unknown]
  - Anxiety [Unknown]
  - Irritability [Recovering/Resolving]
  - Psychomotor hyperactivity [Recovering/Resolving]
  - Aggression [Unknown]
  - Affect lability [Unknown]
  - Agitation [Unknown]
  - Psychomotor hyperactivity [Recovered/Resolved]
  - Road traffic accident [Unknown]
  - Abnormal behaviour [Unknown]
  - Drug dependence [Unknown]
  - Loss of consciousness [Recovering/Resolving]
  - Euphoric mood [Recovering/Resolving]
  - Insomnia [Recovering/Resolving]
  - Apathy [Unknown]
  - Nightmare [Unknown]
  - Drug abuse [Unknown]
  - Fear [Unknown]
  - Intentional overdose [Unknown]
  - Suicidal ideation [Unknown]
  - Depressed level of consciousness [Recovering/Resolving]
  - Anger [Recovering/Resolving]
  - Flashback [Recovering/Resolving]
  - Inappropriate affect [Unknown]
  - Loss of personal independence in daily activities [Unknown]

NARRATIVE: CASE EVENT DATE: 200808
